FAERS Safety Report 7546909-1 (Version None)
Quarter: 2011Q2

REPORT INFORMATION
  Report Type: 
  Country: None (occurrence: None)
  Receive Date: 20110614
  Receipt Date: 20110607
  Transmission Date: 20111010
  Serious: Yes (Hospitalization, Disabling)
  Sender: FDA-Public Use
  Company Number: GB-MERCK-1103GBR00009

PATIENT
  Age: 63 Year
  Sex: Female
  Weight: 94 kg

DRUGS (9)
  1. RAMIPRIL [Concomitant]
     Indication: TYPE 2 DIABETES MELLITUS
     Route: 065
  2. GLICLAZIDE [Concomitant]
     Indication: TYPE 2 DIABETES MELLITUS
     Route: 065
  3. VALPROATE SODIUM [Concomitant]
     Indication: SCHIZOPHRENIA
     Route: 065
  4. METFORMIN [Concomitant]
     Indication: TYPE 2 DIABETES MELLITUS
     Route: 065
  5. TRIMETHOPRIM [Concomitant]
     Indication: URINARY TRACT INFECTION
     Route: 065
     Dates: start: 20110201
  6. OLANZAPINE [Concomitant]
     Indication: SCHIZOPHRENIA
     Route: 065
  7. JANUVIA [Suspect]
     Indication: TYPE 2 DIABETES MELLITUS
     Route: 048
  8. RAMIPRIL [Concomitant]
     Indication: HYPERTENSION
     Route: 065
  9. AMLODIPINE [Concomitant]
     Indication: HYPERTENSION
     Route: 065

REACTIONS (5)
  - TRICUSPID VALVE INCOMPETENCE [None]
  - BUNDLE BRANCH BLOCK LEFT [None]
  - CAROTID ARTERY STENOSIS [None]
  - ISCHAEMIC STROKE [None]
  - LEFT VENTRICULAR HYPERTROPHY [None]
